FAERS Safety Report 8198911-7 (Version None)
Quarter: 2012Q1

REPORT INFORMATION
  Report Type: 
  Country: None (occurrence: None)
  Receive Date: 20120309
  Receipt Date: 20120223
  Transmission Date: 20120608
  Serious: No
  Sender: FDA-Public Use
  Company Number: US-AMGEN-USASP2012012078

PATIENT
  Sex: Female

DRUGS (11)
  1. POTASSIUM [Concomitant]
  2. METFORMIN [Concomitant]
  3. ATORVASTATIN [Concomitant]
  4. NEXIUM [Concomitant]
     Dosage: UNK
  5. PROLIA [Suspect]
     Indication: OSTEOPOROSIS POSTMENOPAUSAL
     Dosage: 60 MG, Q6MO
  6. ZYRTEC [Concomitant]
  7. ARTHROTEC [Concomitant]
  8. LISINOPRIL [Concomitant]
  9. CALTRATE + D                       /00188401/ [Concomitant]
     Dosage: UNK
  10. MAGNESIUM [Concomitant]
  11. NASACORT [Concomitant]

REACTIONS (2)
  - TOOTHACHE [None]
  - TOOTH INFECTION [None]
